FAERS Safety Report 19606445 (Version 2)
Quarter: 2021Q4

REPORT INFORMATION
  Report Type: Report from Study
  Country: US (occurrence: US)
  Receive Date: 20210725
  Receipt Date: 20211105
  Transmission Date: 20220303
  Serious: No
  Sender: FDA-Public Use
  Company Number: US-AMGEN-USASP2021112385

PATIENT

DRUGS (1)
  1. REPATHA [Suspect]
     Active Substance: EVOLOCUMAB
     Indication: Product used for unknown indication
     Dosage: UNK
     Route: 065

REACTIONS (1)
  - Injection site rash [Unknown]
